FAERS Safety Report 7922662-4 (Version None)
Quarter: 2011Q4

REPORT INFORMATION
  Report Type: 
  Country: None (occurrence: None)
  Receive Date: 20111117
  Receipt Date: 20110310
  Transmission Date: 20120403
  Serious: No
  Sender: FDA-Public Use
  Company Number: US-ALLERGAN-1103411US

PATIENT
  Age: 77 Year
  Sex: Female

DRUGS (3)
  1. COMBIGAN [Suspect]
     Indication: GLAUCOMA
     Dosage: 1 GTT, BID
     Route: 047
     Dates: start: 20101101
  2. CLONIDINE [Concomitant]
     Indication: BLOOD PRESSURE
     Dosage: UNK
  3. XALATAN [Concomitant]
     Indication: GLAUCOMA
     Dosage: 1 GTT, QHS
     Route: 047
     Dates: start: 20090301

REACTIONS (7)
  - EYE IRRITATION [None]
  - DARK CIRCLES UNDER EYES [None]
  - OCULAR ICTERUS [None]
  - SKIN BURNING SENSATION [None]
  - OCULAR HYPERAEMIA [None]
  - EYE PRURITUS [None]
  - BALANCE DISORDER [None]
